FAERS Safety Report 10642435 (Version 2)
Quarter: 2015Q1

REPORT INFORMATION
  Report Type: Spontaneous
  Country: BR (occurrence: BR)
  Receive Date: 20141210
  Receipt Date: 20150212
  Transmission Date: 20150720
  Serious: Yes (Other)
  Sender: FDA-Public Use
  Company Number: BR-ABBVIE-14P-020-1318688-00

PATIENT
  Age: 44 Year
  Sex: Female
  Weight: 63 kg

DRUGS (7)
  1. SIMVASTATIN. [Concomitant]
     Active Substance: SIMVASTATIN
     Indication: BLOOD CHOLESTEROL ABNORMAL
     Route: 048
  2. PURAN [Concomitant]
     Active Substance: LEVOTHYROXINE SODIUM
     Indication: HYPOTHYROIDISM
     Dosage: 88 MICROGRAM IN THE MORNING
     Route: 048
  3. DEPAKOTE [Suspect]
     Active Substance: DIVALPROEX SODIUM
     Dosage: RESUMED TREATMENT SEVERAL TIMES
     Route: 065
  4. DEPAKOTE [Suspect]
     Active Substance: DIVALPROEX SODIUM
     Indication: SEIZURE
     Route: 048
  5. DOSS [Concomitant]
     Active Substance: DOCUSATE SODIUM
     Indication: VITAMIN SUPPLEMENTATION
     Dosage: 1 TABLET; IN THE MORNING
     Route: 048
     Dates: start: 201411
  6. GARDENAL [Concomitant]
     Active Substance: PHENOBARBITAL
     Indication: SEIZURE
     Dosage: 100 MG AT NIGHT, STARTED AT 9 YEARS OF AGE
     Route: 048
     Dates: start: 1979
  7. RIVOTRIL [Concomitant]
     Active Substance: CLONAZEPAM
     Indication: SEDATION
     Dosage: 2 MILLIGRAM AT NIGHT STARTED AROUND 2 MONTHS AGO
     Route: 048
     Dates: start: 2014

REACTIONS (6)
  - Screaming [Recovering/Resolving]
  - Petit mal epilepsy [Recovering/Resolving]
  - Neurocysticercosis [Unknown]
  - Petit mal epilepsy [Recovered/Resolved]
  - Screaming [Recovered/Resolved]
  - Seizure [Recovering/Resolving]

NARRATIVE: CASE EVENT DATE: 2014
